FAERS Safety Report 23095948 (Version 2)
Quarter: 2023Q4

REPORT INFORMATION
  Report Type: Spontaneous
  Country: JP (occurrence: JP)
  Receive Date: 20231023
  Receipt Date: 20231206
  Transmission Date: 20240110
  Serious: Yes (Hospitalization)
  Sender: FDA-Public Use
  Company Number: JP-ELI_LILLY_AND_COMPANY-JP202310009350

PATIENT
  Age: 75 Year
  Sex: Male
  Weight: 55 kg

DRUGS (6)
  1. RETEVMO [Suspect]
     Active Substance: SELPERCATINIB
     Indication: Medullary thyroid cancer
     Dosage: 160 MG, BID
     Route: 048
     Dates: start: 20220608, end: 20230629
  2. RETEVMO [Suspect]
     Active Substance: SELPERCATINIB
     Dosage: 80 MG, BID
     Route: 048
     Dates: start: 20220720, end: 20220726
  3. RETEVMO [Suspect]
     Active Substance: SELPERCATINIB
     Dosage: 120 MG, UNKNOWN
     Route: 048
     Dates: start: 20220727, end: 20220802
  4. RETEVMO [Suspect]
     Active Substance: SELPERCATINIB
     Dosage: 160 MG, UNKNOWN
     Route: 048
     Dates: start: 20220803, end: 20220816
  5. RETEVMO [Suspect]
     Active Substance: SELPERCATINIB
     Dosage: 240 MG, UNKNOWN
     Route: 048
     Dates: start: 20220817, end: 20230913
  6. RETEVMO [Suspect]
     Active Substance: SELPERCATINIB
     Dosage: 320 MG, UNKNOWN
     Route: 048
     Dates: start: 20230914

REACTIONS (1)
  - Appendicitis [Recovered/Resolved]

NARRATIVE: CASE EVENT DATE: 20230601
